FAERS Safety Report 8793309 (Version 1)
Quarter: 2012Q4

REPORT INFORMATION
  Report Type: 
  Country: US (occurrence: US)
  Receive Date: 20120917
  Receipt Date: 20120917
  Transmission Date: 20130627
  Serious: Yes (Hospitalization)
  Sender: FDA-Public Use
  Company Number: US-PFIZER INC-2012228382

PATIENT
  Age: 90 Year
  Sex: Female
  Weight: 51.7 kg

DRUGS (1)
  1. LYRICA [Suspect]
     Indication: PAIN
     Dosage: 50 mg, daily
     Dates: start: 20120806, end: 20120807

REACTIONS (3)
  - Dry mouth [Not Recovered/Not Resolved]
  - Oral pain [Not Recovered/Not Resolved]
  - Bedridden [Unknown]
